FAERS Safety Report 12845704 (Version 1)
Quarter: 2016Q4

REPORT INFORMATION
  Report Type: Spontaneous
  Country: FR (occurrence: FR)
  Receive Date: 20161013
  Receipt Date: 20161013
  Transmission Date: 20170207
  Serious: Yes (Hospitalization)
  Sender: FDA-Public Use
  Company Number: FR-ASTRAZENECA-2016SF07203

PATIENT
  Age: 35 Year
  Sex: Male

DRUGS (8)
  1. XEROQUEL [Suspect]
     Active Substance: QUETIAPINE FUMARATE
     Indication: PSYCHOTIC DISORDER
     Route: 048
  2. LEPTICUR [Concomitant]
     Active Substance: TROPATEPINE HYDROCHLORIDE
  3. XANAX [Suspect]
     Active Substance: ALPRAZOLAM
     Indication: ANXIETY
     Route: 065
  4. OXCARBAZEPINE. [Suspect]
     Active Substance: OXCARBAZEPINE
     Indication: EPILEPSY
     Route: 065
     Dates: start: 201607
  5. VALPROATE DE SODIUM [Concomitant]
     Active Substance: VALPROATE SODIUM
  6. TRANSIPEG [Concomitant]
     Active Substance: POLYETHYLENE GLYCOL 3350
     Dosage: 3.9 GRAMS PER PACKET, 2 PACKETS TWO TIMES A DAY
     Dates: start: 201606
  7. HALDOL [Concomitant]
     Active Substance: HALOPERIDOL
     Dosage: 1000 DROPS THREE TIMES A DAY
  8. THERALENE [Concomitant]
     Active Substance: TRIMEPRAZINE
     Dosage: 4%: 25 DROPS PER DAY

REACTIONS (2)
  - Generalised tonic-clonic seizure [Unknown]
  - Hyponatraemia [Recovered/Resolved]

NARRATIVE: CASE EVENT DATE: 20160913
